FAERS Safety Report 8429896-3 (Version None)
Quarter: 2012Q2

REPORT INFORMATION
  Report Type: 
  Country: None (occurrence: None)
  Receive Date: 20120612
  Receipt Date: 20120605
  Transmission Date: 20120825
  Serious: Yes (Hospitalization, Other)
  Sender: FDA-Public Use
  Company Number: US-UCBSA-047410

PATIENT
  Age: 44 Year
  Sex: Female
  Weight: 44.9 kg

DRUGS (51)
  1. ACETAMINOPHEN [Concomitant]
     Route: 048
     Dates: start: 20110921, end: 20111021
  2. PANTOPRAZOLE [Concomitant]
     Route: 042
     Dates: start: 20110924
  3. DIPHENHYDRAMINE HCL [Concomitant]
     Route: 048
     Dates: start: 20110921, end: 20110921
  4. SALINE [Concomitant]
     Route: 042
     Dates: start: 20110921, end: 20111021
  5. ACETAMINOPHEN [Concomitant]
     Route: 054
     Dates: start: 20110921, end: 20111021
  6. ERTAPENEM [Concomitant]
     Dosage: 50 ML
     Route: 042
     Dates: start: 20110921
  7. GLYCOPYRROLATE [Concomitant]
     Dosage: G-TUBE
     Dates: start: 20110921
  8. LIDOCAINE [Concomitant]
     Dosage: 5 ML
     Dates: start: 20110926, end: 20110926
  9. MORPHINE SULFATE [Concomitant]
     Route: 042
     Dates: start: 20110921
  10. NALOXONE HCL [Concomitant]
     Route: 042
     Dates: start: 20110921, end: 20111021
  11. NON FORMULATORY ITEMS [Concomitant]
     Route: 042
     Dates: start: 20110921, end: 20111021
  12. PROPOFOL [Concomitant]
     Route: 042
     Dates: start: 20110921
  13. ACETAMINOPHEN [Concomitant]
     Dosage: 1000 MG. Q8H4
     Route: 042
     Dates: start: 20110926, end: 20110927
  14. ACETAMINOPHEN [Concomitant]
     Route: 048
     Dates: start: 20110930, end: 20110930
  15. HYOSCYAMINE SULFATE [Concomitant]
     Dosage: ONCE AT BED TIME
     Route: 048
     Dates: start: 20110921, end: 20110921
  16. KETOROLAC TROMETHAMINE [Concomitant]
     Route: 030
     Dates: start: 20110921, end: 20110921
  17. MAGNESIUM SULFATE [Concomitant]
     Route: 042
     Dates: start: 20110921, end: 20110923
  18. NEOSTIGMINE [Concomitant]
     Route: 030
     Dates: start: 20110921
  19. ACETAMINOPHEN [Concomitant]
     Route: 042
     Dates: start: 20110926, end: 20110927
  20. ACETAMINOPHEN [Concomitant]
     Route: 042
     Dates: start: 20110924, end: 20110927
  21. ALVIMOPAN [Concomitant]
     Route: 048
     Dates: start: 20110921
  22. HEPARIN SODIUM [Concomitant]
     Dosage: 5000 UNITS Q12H10
     Route: 058
     Dates: start: 20110921
  23. METOCLOPRAMIDE HYDROCHLORIDE [Concomitant]
     Route: 042
     Dates: start: 20110921, end: 20110923
  24. DEXTROSE SALINE [Concomitant]
     Route: 042
     Dates: start: 20110922, end: 20110922
  25. SODIUM CHLORIDE [Concomitant]
     Route: 042
     Dates: start: 20110921
  26. TPN [Concomitant]
  27. ACETAMINOPHEN [Concomitant]
     Route: 042
     Dates: start: 20110924, end: 20110925
  28. ERGOCALCIFEROL [Concomitant]
     Dosage: 1 CAPSULE
     Route: 048
     Dates: start: 20110921, end: 20110921
  29. GENTAMICIN SULFATE [Concomitant]
     Dates: start: 20110921
  30. LIDOCAINE [Concomitant]
     Dates: start: 20110921, end: 20110925
  31. MIDAZOLAM HCL [Concomitant]
     Route: 042
     Dates: start: 20110921
  32. ONDASETRON HCL [Concomitant]
     Route: 042
     Dates: start: 20110921
  33. DIPHENHYDRAMINE HCL [Concomitant]
     Route: 042
     Dates: start: 20110924, end: 20110929
  34. ACETAMINOPHEN [Concomitant]
     Route: 042
     Dates: start: 20110922, end: 20110924
  35. ACETAMINOPHEN [Concomitant]
     Route: 042
     Dates: start: 20110924, end: 20110924
  36. HYDROMORPHONE HCL [Concomitant]
     Dosage: 0.5-1 MG
     Route: 042
     Dates: start: 20110921
  37. KETOROLAC TROMETHAMINE [Concomitant]
     Route: 042
     Dates: start: 20110922, end: 20110929
  38. MAGNESIUM SULFATE [Concomitant]
     Route: 042
     Dates: start: 20110921, end: 20110921
  39. MAGNESIUM SULFATE [Concomitant]
     Dates: start: 20110925, end: 20110925
  40. PROCHLORPERAZINE EDISYLATE [Concomitant]
     Dosage: 5-10 MG, ONCE IN 6 HOURS
     Route: 042
     Dates: start: 20110921, end: 20110921
  41. PROMETHAZINE HCL [Concomitant]
     Route: 042
     Dates: start: 20110921
  42. FENTANYL CITRATE [Concomitant]
     Route: 042
     Dates: start: 20110921
  43. ACETAMINOPHEN [Concomitant]
     Route: 042
     Dates: start: 20110929, end: 20111001
  44. FAMOTIDINE [Concomitant]
     Dosage: 3 DAYS ONLY
     Route: 042
     Dates: start: 20110921, end: 20110924
  45. PHENYLEPHRINE HYDROCHLORIDE [Concomitant]
     Route: 042
     Dates: start: 20110921
  46. ZALEPLON [Concomitant]
     Dosage: ONCE AT NIGHT
     Route: 048
     Dates: start: 20110924, end: 20111024
  47. DIPHENHYDRAMINE HCL [Concomitant]
     Route: 048
     Dates: start: 20110921, end: 20110921
  48. OXYCODONE HCL [Concomitant]
     Route: 048
     Dates: start: 20110924, end: 20111002
  49. CIMZIA [Suspect]
     Indication: CROHN'S DISEASE
     Route: 058
     Dates: start: 20110328
  50. LACTATED RINGER'S [Concomitant]
     Route: 042
     Dates: start: 20110921
  51. ROCURONIUM BROMIDE [Concomitant]
     Route: 042
     Dates: start: 20110921

REACTIONS (3)
  - CYST ASPIRATION [None]
  - HAEMORRHAGE SUBCUTANEOUS [None]
  - SALPINGO-OOPHORECTOMY [None]
